FAERS Safety Report 4680812-X (Version None)
Quarter: 2005Q2

REPORT INFORMATION
  Report Type: 
  Country: None (occurrence: None)
  Receive Date: 20050603
  Receipt Date: 20050525
  Transmission Date: 20051028
  Serious: Yes (Disabling)
  Sender: FDA-Public Use
  Company Number: PHEH2005US06014

PATIENT
  Sex: Female

DRUGS (1)
  1. VIVELLE-DOT [Suspect]
     Dates: start: 20030101

REACTIONS (3)
  - CYSTITIS INTERSTITIAL [None]
  - NERVE INJURY [None]
  - PELVIC PAIN [None]
